FAERS Safety Report 4396579-9 (Version None)
Quarter: 2004Q3

REPORT INFORMATION
  Report Type: 
  Country: None (occurrence: None)
  Receive Date: 20040712
  Receipt Date: 20040628
  Transmission Date: 20050211
  Serious: Yes (Hospitalization)
  Sender: FDA-Public Use
  Company Number: 04P-056-0265460-00

PATIENT
  Age: 37 Year
  Sex: Female

DRUGS (5)
  1. KALETRA [Suspect]
     Dosage: 3 DOSAGE FORMS, 2 IN 1 D, PER ORAL
     Route: 048
     Dates: start: 20011107
  2. TRIZIVIR [Suspect]
     Dosage: PER ORAL
     Route: 048
     Dates: start: 20011107
  3. ALBUTEROL SULFATE [Concomitant]
  4. SINGULAIR [Concomitant]
  5. OMEPRAZOLE [Concomitant]

REACTIONS (8)
  - ARTHROPATHY [None]
  - BONE DEVELOPMENT ABNORMAL [None]
  - FOOT FRACTURE [None]
  - LIMB INJURY [None]
  - OEDEMA [None]
  - OSTEOPENIA [None]
  - PAIN [None]
  - PATHOLOGICAL FRACTURE [None]
